FAERS Safety Report 8446255-8 (Version None)
Quarter: 2012Q2

REPORT INFORMATION
  Report Type: 
  Country: None (occurrence: None)
  Receive Date: 20120618
  Receipt Date: 20120611
  Transmission Date: 20120825
  Serious: Yes (Hospitalization, Other)
  Sender: FDA-Public Use
  Company Number: FR-PFIZER INC-2012139531

PATIENT
  Age: 63 Year
  Sex: Male

DRUGS (7)
  1. MIRTAZAPINE [Suspect]
     Indication: DEPRESSION
     Dosage: 30 MG, 1X/DAY
     Route: 048
     Dates: start: 20110101, end: 20120417
  2. PANTOPRAZOLE SODIUM [Concomitant]
     Dosage: 1 DF, 1X/DAY
  3. ASPIRIN [Concomitant]
     Dosage: 75 MG, 1X/DAY
  4. ATORVASTATIN [Suspect]
     Indication: DYSLIPIDAEMIA
     Dosage: 1 DF, 1X/DAY
     Route: 048
     Dates: start: 20111101, end: 20111222
  5. ENALAPRIL MALEATE [Suspect]
     Indication: HYPERTENSION
     Dosage: 10 MG, 1X/DAY
     Route: 048
  6. ALLOPURINOL [Suspect]
     Indication: GOUT
     Dosage: 300 MG, 1X/DAY
     Route: 048
  7. EZETIMIBE/SIMVASTATIN [Suspect]
     Dosage: 1 DF, 1X/DAY
     Route: 048
     Dates: start: 20110101, end: 20111101

REACTIONS (3)
  - BLOOD CREATINE PHOSPHOKINASE INCREASED [None]
  - PARAESTHESIA [None]
  - CONDITION AGGRAVATED [None]
